FAERS Safety Report 4694816-4 (Version None)
Quarter: 2005Q2

REPORT INFORMATION
  Report Type: 
  Country: None (occurrence: None)
  Receive Date: 20050620
  Receipt Date: 20050527
  Transmission Date: 20051028
  Serious: Yes (Hospitalization)
  Sender: FDA-Public Use
  Company Number: 2005AP03135

PATIENT
  Age: 29784 Day
  Sex: Male

DRUGS (6)
  1. ZOLADEX [Suspect]
     Indication: PROSTATE CANCER
     Dosage: 2 DEPOTS GIVEN
     Route: 058
     Dates: start: 20050201, end: 20050426
  2. EUGLUCON [Concomitant]
     Indication: DIABETES MELLITUS
     Route: 048
     Dates: start: 20030908
  3. ASPIRIN [Concomitant]
     Indication: CEREBRAL INFARCTION
     Route: 048
     Dates: start: 20030908
  4. BLOPRESS [Concomitant]
     Indication: HYPERTENSION
     Route: 048
     Dates: start: 20030908
  5. AMLODIN [Concomitant]
     Indication: HYPERTENSION
     Route: 048
     Dates: start: 20030908
  6. CARDENALIN [Concomitant]
     Indication: HYPERTENSION
     Route: 048
     Dates: start: 20030908

REACTIONS (1)
  - ASTHMA [None]
